FAERS Safety Report 8991834 (Version 1)
Quarter: 2012Q4

REPORT INFORMATION
  Report Type: 
  Country: US (occurrence: US)
  Receive Date: 20121231
  Receipt Date: 20121231
  Transmission Date: 20130627
  Serious: Yes (Hospitalization)
  Sender: FDA-Public Use
  Company Number: PHHY2012US121202

PATIENT
  Age: 68 Year
  Sex: Female

DRUGS (3)
  1. OXALIPLATIN [Suspect]
     Indication: CHEMOTHERAPY
  2. FLUOROURACIL [Concomitant]
     Indication: CHEMOTHERAPY
  3. LEUCOVORIN [Concomitant]
     Indication: CHEMOTHERAPY

REACTIONS (8)
  - Thrombotic thrombocytopenic purpura [Recovered/Resolved]
  - Confusional state [Recovered/Resolved]
  - Thrombocytopenia [Recovered/Resolved]
  - Haemolysis [Recovered/Resolved]
  - Chest pain [Recovered/Resolved]
  - Jaundice [Recovered/Resolved]
  - Reticulocytosis [Recovered/Resolved]
  - Anaemia [Recovered/Resolved]
